FAERS Safety Report 7409303-X (Version None)
Quarter: 2011Q2

REPORT INFORMATION
  Report Type: 
  Country: None (occurrence: None)
  Receive Date: 20110412
  Receipt Date: 20110329
  Transmission Date: 20111010
  Serious: Yes (Disabling)
  Sender: FDA-Public Use
  Company Number: B0712112A

PATIENT
  Age: 54 Year
  Sex: Male
  Weight: 95 kg

DRUGS (10)
  1. CELIPROLOL [Concomitant]
     Route: 065
     Dates: start: 20101202
  2. DOXAZOSIN [Concomitant]
     Route: 065
     Dates: start: 20101202
  3. ACETIC ACID [Concomitant]
     Route: 065
     Dates: start: 20110124, end: 20110131
  4. CLOPIDOGREL [Concomitant]
     Route: 065
     Dates: start: 20101202
  5. NICORANDIL [Concomitant]
     Route: 065
     Dates: start: 20101202
  6. NITROGLYCERIN [Concomitant]
     Route: 065
     Dates: start: 20110104
  7. TADALAFIL [Concomitant]
     Route: 065
     Dates: start: 20110104, end: 20110108
  8. OMACOR [Suspect]
     Route: 048
     Dates: start: 20110303
  9. LANSOPRAZOLE [Concomitant]
     Route: 065
     Dates: start: 20110303
  10. EZETIMIBE [Concomitant]
     Route: 065
     Dates: start: 20110121

REACTIONS (2)
  - ARTHRALGIA [None]
  - MUSCLE SPASMS [None]
